FAERS Safety Report 7930958-5 (Version None)
Quarter: 2011Q4

REPORT INFORMATION
  Report Type: 
  Country: None (occurrence: None)
  Receive Date: 20111121
  Receipt Date: 20111115
  Transmission Date: 20120403
  Serious: No
  Sender: FDA-Public Use
  Company Number: US-PFIZER INC-K201101109

PATIENT
  Sex: Female
  Weight: 54.422 kg

DRUGS (4)
  1. FLECTOR [Suspect]
     Indication: MUSCLE TIGHTNESS
     Dosage: UNK, 2X/DAY
     Dates: start: 20110912, end: 20110901
  2. FLECTOR [Suspect]
     Indication: NECK PAIN
     Dosage: UNK PATCH, BID
     Dates: start: 20110912, end: 20110901
  3. IBUPROFEN (ADVIL) [Concomitant]
     Dosage: UNK
  4. FLECTOR [Suspect]
     Indication: MYOSITIS

REACTIONS (2)
  - DISCOMFORT [None]
  - DRUG INEFFECTIVE [None]
